FAERS Safety Report 9436772 (Version 1)
Quarter: 2013Q3

REPORT INFORMATION
  Report Type: Report from Study
  Country: US (occurrence: US)
  Receive Date: 20130802
  Receipt Date: 20130802
  Transmission Date: 20140515
  Serious: Yes (Hospitalization, Other)
  Sender: FDA-Public Use
  Company Number: US-BAYER-2013-057733

PATIENT
  Age: 72 Year
  Sex: Female

DRUGS (7)
  1. NEXAVAR [Suspect]
     Indication: RENAL CELL CARCINOMA
     Dosage: 400 MG, BID (200 MG, 2 TABLETS, TWICE DAILY)
     Route: 048
     Dates: start: 20130328, end: 20130411
  2. NEXAVAR [Suspect]
     Indication: RENAL CELL CARCINOMA
     Dosage: 400 MG, BID (200 MG, 2 TABLETS, TWICE DAILY)
     Route: 048
     Dates: start: 20130425, end: 20130502
  3. NEXAVAR [Suspect]
     Indication: RENAL CELL CARCINOMA
     Dosage: 200MG (2XDAY)
     Route: 048
  4. NEXAVAR [Suspect]
     Indication: RENAL CELL CARCINOMA
     Dosage: DAILY DOSE 600 MG
  5. NEXAVAR [Suspect]
     Indication: RENAL CELL CARCINOMA
     Dosage: 400 MG, BID
     Route: 048
  6. WARFARIN [Concomitant]
  7. WARFARIN [Concomitant]
     Dosage: DOSE DECREASED

REACTIONS (17)
  - Renal cell carcinoma [None]
  - Headache [None]
  - Neck pain [None]
  - Oropharyngeal pain [None]
  - Memory impairment [Recovering/Resolving]
  - Musculoskeletal stiffness [Not Recovered/Not Resolved]
  - Asthenia [Recovering/Resolving]
  - Lethargy [Recovering/Resolving]
  - Pruritus [Recovering/Resolving]
  - Muscle disorder [Recovering/Resolving]
  - Fatigue [None]
  - Blood pressure increased [None]
  - Dysgeusia [None]
  - Glossodynia [None]
  - Nausea [None]
  - Hyperkeratosis [None]
  - International normalised ratio increased [None]
